FAERS Safety Report 13589060 (Version 2)
Quarter: 2024Q4

REPORT INFORMATION
  Report Type: Spontaneous
  Country: JP (occurrence: JP)
  Receive Date: 20170529
  Receipt Date: 20241207
  Transmission Date: 20250115
  Serious: Yes (Death, Life-Threatening, Hospitalization, Other)
  Sender: MACLEODS
  Company Number: None

PATIENT

DRUGS (1)
  1. LEVOFLOXACIN [Suspect]
     Active Substance: LEVOFLOXACIN
     Indication: Inflammation
     Dosage: UNK, INTERMITTENTLY RECEIVED MULTIPLE 2-WEEK COURSES OF LEVOFLOXACIN
     Route: 065

REACTIONS (21)
  - Candida endophthalmitis [Fatal]
  - Conjunctival haemorrhage [Fatal]
  - Ciliary hyperaemia [Fatal]
  - Visual impairment [Fatal]
  - Retinal haemorrhage [Fatal]
  - Graft infection [Fatal]
  - Cerebral artery embolism [Fatal]
  - Subarachnoid haemorrhage [Fatal]
  - Condition aggravated [Fatal]
  - Hemiplegia [Fatal]
  - Carotid artery thrombosis [Unknown]
  - Peripheral artery thrombosis [Unknown]
  - Venous thrombosis limb [Unknown]
  - Dysphonia [Unknown]
  - Neck pain [Unknown]
  - Erythema [Unknown]
  - Tenderness [Unknown]
  - Peripheral swelling [Unknown]
  - Hepatic enzyme increased [Unknown]
  - Anaemia [Unknown]
  - Pyrexia [Unknown]
